FAERS Safety Report 12633628 (Version 1)
Quarter: 2016Q3

REPORT INFORMATION
  Report Type: Spontaneous
  Country: US (occurrence: None)
  Receive Date: 20160808
  Receipt Date: 20160808
  Transmission Date: 20161109
  Serious: Yes (Disabling)
  Sender: FDA-Public Use
  Company Number: None

PATIENT
  Age: 56 Year
  Sex: Female
  Weight: 47.17 kg

DRUGS (6)
  1. ACYCLOVIR. [Concomitant]
     Active Substance: ACYCLOVIR
  2. BIEST CREAM WITH TESTORONE [Concomitant]
  3. GABAPENTINE [Concomitant]
     Active Substance: GABAPENTIN
  4. KETOCONAZOLE CREAM 2%, 60 G [Suspect]
     Active Substance: KETOCONAZOLE
     Indication: TINEA PEDIS
     Route: 061
     Dates: start: 20160705, end: 20160805
  5. PROGESTERONE. [Concomitant]
     Active Substance: PROGESTERONE
  6. LEVOTHYROXINE. [Concomitant]
     Active Substance: LEVOTHYROXINE

REACTIONS (3)
  - Skin irritation [None]
  - Pruritus [None]
  - Skin burning sensation [None]

NARRATIVE: CASE EVENT DATE: 20160721
